FAERS Safety Report 25663141 (Version 1)
Quarter: 2025Q3

REPORT INFORMATION
  Report Type: Report from Study
  Country: AU (occurrence: AU)
  Receive Date: 20250811
  Receipt Date: 20250811
  Transmission Date: 20251021
  Serious: Yes (Other)
  Sender: ROCHE
  Company Number: AU-ROCHE-10000186725

PATIENT
  Age: 43 Year
  Sex: Female

DRUGS (3)
  1. OCREVUS [Suspect]
     Active Substance: OCRELIZUMAB
     Indication: Relapsing-remitting multiple sclerosis
     Dosage: HAS COMPLETED 1ST 300MG HALF DOSE
     Route: 042
     Dates: start: 20250116
  2. PREDNISONE [Concomitant]
     Active Substance: PREDNISONE
  3. LEMTRADA [Concomitant]
     Active Substance: ALEMTUZUMAB

REACTIONS (5)
  - Fatigue [Unknown]
  - Paraesthesia [Unknown]
  - Visual impairment [Unknown]
  - Swelling face [Unknown]
  - Swelling [Unknown]

NARRATIVE: CASE EVENT DATE: 20250116
